FAERS Safety Report 9314409 (Version 1)
Quarter: 2013Q2

REPORT INFORMATION
  Report Type: Spontaneous
  Country: US (occurrence: None)
  Receive Date: 20130524
  Receipt Date: 20130524
  Transmission Date: 20140414
  Serious: No
  Sender: FDA-Public Use
  Company Number: None

PATIENT
  Age: 35 Year
  Sex: Female
  Weight: 81.65 kg

DRUGS (1)
  1. SUBOXONE [Suspect]

REACTIONS (8)
  - Drug withdrawal syndrome [None]
  - Pain [None]
  - Diarrhoea [None]
  - Hyperhidrosis [None]
  - Confusional state [None]
  - Drug effect decreased [None]
  - Product measured potency issue [None]
  - Product substitution issue [None]
